FAERS Safety Report 8269308-6 (Version None)
Quarter: 2012Q2

REPORT INFORMATION
  Report Type: 
  Country: None (occurrence: None)
  Receive Date: 20120409
  Receipt Date: 20120404
  Transmission Date: 20120825
  Serious: Yes (Life-Threatening)
  Sender: FDA-Public Use
  Company Number: PHHY2012RU029094

PATIENT
  Sex: Female

DRUGS (2)
  1. DICLOFENAC SODIUM [Suspect]
  2. ADELPHANE [Suspect]

REACTIONS (2)
  - ULCER [None]
  - GASTROINTESTINAL HAEMORRHAGE [None]
